FAERS Safety Report 10486725 (Version 3)
Quarter: 2014Q4

REPORT INFORMATION
  Report Type: Spontaneous
  Country: DE (occurrence: DE)
  Receive Date: 20141001
  Receipt Date: 20141203
  Transmission Date: 20150528
  Serious: Yes (Hospitalization)
  Sender: FDA-Public Use
  Company Number: DE-AMGEN-DEUSP2014072801

PATIENT
  Sex: Female

DRUGS (23)
  1. OXYCODONE HCL [Concomitant]
     Active Substance: OXYCODONE HYDROCHLORIDE
     Indication: TUMOUR PAIN
     Dosage: 5 MG, 2 TIMES A DAY
     Route: 048
     Dates: start: 20140624
  2. AMLODIPINE W/VALSARTAN [Concomitant]
     Active Substance: AMLODIPINE\VALSARTAN
     Indication: HYPERTENSION
     Dosage: 10/160 MG, 1-0-0
     Route: 048
     Dates: start: 20140624
  3. ACICLOVIR [Concomitant]
     Active Substance: ACYCLOVIR
     Indication: INFECTION PROPHYLAXIS
     Dosage: 400 MG, 4 TIMES A DAY
     Route: 048
     Dates: start: 20140729
  4. VINCRISTINE [Suspect]
     Active Substance: VINCRISTINE
     Indication: B-CELL LYMPHOMA
     Dosage: 2 MG/CYCLE D1
     Route: 042
     Dates: start: 20140730
  5. BEARBERRY [Concomitant]
     Indication: URGE INCONTINENCE
     Dosage: 5 ML, AS NECESSARY
     Route: 048
     Dates: start: 20140714
  6. PEGFILGRASTIM [Suspect]
     Active Substance: PEGFILGRASTIM
     Indication: B-CELL LYMPHOMA
     Dosage: 6 MG/CYCLES D4
     Route: 058
     Dates: start: 20140802
  7. DOXORUBICIN [Suspect]
     Active Substance: DOXORUBICIN
     Indication: B-CELL LYMPHOMA
     Dosage: 100 MG/CYCLE D1
     Route: 042
     Dates: start: 20140730
  8. TROSPIUM CHLORIDE. [Concomitant]
     Active Substance: TROSPIUM CHLORIDE
     Indication: URGE INCONTINENCE
     Dosage: 30 MG, 1 TIMES A DAY
     Route: 048
     Dates: start: 20140624
  9. ALLOPURINOL. [Concomitant]
     Active Substance: ALLOPURINOL
     Indication: HYPERURICAEMIA
     Dosage: 300 MG, 1 TIMES A DAY
     Route: 048
     Dates: start: 20140730
  10. LACTULOSE. [Concomitant]
     Active Substance: LACTULOSE
     Indication: CONSTIPATION
     Dosage: 10 ML, 1 TIME A DAY FOR 15 DAYS
     Route: 048
     Dates: start: 20140814, end: 20140828
  11. CYCLOPHOSPHAMIDE. [Suspect]
     Active Substance: CYCLOPHOSPHAMIDE
     Indication: B-CELL LYMPHOMA
     Dosage: 1500 MG/CYCLE D1
     Route: 042
     Dates: start: 20140730
  12. BALDRIAN                           /01561601/ [Concomitant]
     Indication: INSOMNIA
     Dosage: 100 MG, 1 TIMES A DAY FOR 7 DAYS
     Route: 048
     Dates: start: 20140817, end: 20140817
  13. SULFAMETHOXAZOLE AND TRIMETHOPRIM [Concomitant]
     Active Substance: SULFAMETHOXAZOLE\TRIMETHOPRIM
     Indication: INFECTION PROPHYLAXIS
     Dosage: 960 MG, SAT/SUN
     Route: 048
     Dates: start: 20140731
  14. DIMENHYDRINATE. [Concomitant]
     Active Substance: DIMENHYDRINATE
     Indication: NAUSEA
     Dosage: 1 AMP, 1X FOR 1 DAY
     Route: 042
     Dates: start: 20140817, end: 20140817
  15. PARACETAMOL [Concomitant]
     Active Substance: ACETAMINOPHEN
     Indication: PAIN PROPHYLAXIS
     Dosage: 1 G, 1 TIMES A DAY FOR 1 DAY
     Route: 048
     Dates: start: 20140826, end: 20140826
  16. METOPROLOL SUCCINATE. [Concomitant]
     Active Substance: METOPROLOL SUCCINATE
     Indication: HYPERTENSION
     Dosage: 95 MG, 2 TIMES A DAY
     Route: 048
     Dates: start: 20140624
  17. COLECALCIFEROL [Concomitant]
     Active Substance: CHOLECALCIFEROL
     Indication: VITAMIN D DEFICIENCY
     Dosage: 20000 IE WEEKLY
     Route: 048
     Dates: start: 20140722
  18. LEVOFLOXACIN. [Concomitant]
     Active Substance: LEVOFLOXACIN
     Indication: WOUND INFECTION
     Dosage: 500 MG, 2 TIMES A DAY FOR 10 DAYS
     Route: 048
     Dates: start: 20140815, end: 20140824
  19. METAMIZOL NATRIUM [Concomitant]
     Indication: PAIN
     Dosage: 500 MG, AS NEEDED FOR 53 DAYS
     Route: 048
     Dates: start: 20140624, end: 20140815
  20. RITUXIMAB [Suspect]
     Active Substance: RITUXIMAB
     Indication: B-CELL LYMPHOMA
     Dosage: 750 MG/CYCLE D0
     Route: 042
     Dates: start: 20140729
  21. ENOXAPARIN SODIUM. [Concomitant]
     Active Substance: ENOXAPARIN SODIUM
     Indication: THROMBOSIS
     Dosage: 40 MG, 1 TIMES A DAY
     Route: 058
     Dates: start: 20140626
  22. PANTOPRAZOLE [Concomitant]
     Active Substance: PANTOPRAZOLE SODIUM
     Indication: GASTRITIS PROPHYLAXIS
     Dosage: 40 MG, 1 TIMES A DAY
     Route: 048
     Dates: start: 20140624
  23. PREDNISONE. [Concomitant]
     Active Substance: PREDNISONE
     Indication: B-CELL LYMPHOMA
     Dosage: 100 MG/CYCLE D1-5
     Route: 048
     Dates: start: 20140730

REACTIONS (1)
  - Neutropenic sepsis [Recovered/Resolved]

NARRATIVE: CASE EVENT DATE: 20140917
